FAERS Safety Report 6721474-7 (Version None)
Quarter: 2010Q2

REPORT INFORMATION
  Report Type: 
  Country: None (occurrence: None)
  Receive Date: 20100510
  Receipt Date: 20100507
  Transmission Date: 20101027
  Serious: Yes (Hospitalization)
  Sender: FDA-Public Use
  Company Number: 2008SP020664

PATIENT
  Age: 42 Year
  Sex: Male

DRUGS (1)
  1. INTRON A [Suspect]
     Indication: MALIGNANT MELANOMA
     Dosage: 1 DF;TIW;SC
     Route: 058
     Dates: start: 20070801, end: 20080601

REACTIONS (8)
  - EMPHYSEMA [None]
  - HAEMANGIOMA OF LIVER [None]
  - HEPATIC STEATOSIS [None]
  - HYPERMETABOLISM [None]
  - INFLUENZA LIKE ILLNESS [None]
  - LUNG NEOPLASM [None]
  - LYMPHADENOPATHY MEDIASTINAL [None]
  - POSITRON EMISSION TOMOGRAM ABNORMAL [None]
